FAERS Safety Report 5371561-3 (Version None)
Quarter: 2007Q2

REPORT INFORMATION
  Report Type: 
  Country: None (occurrence: None)
  Receive Date: 20070625
  Receipt Date: 20070625
  Transmission Date: 20071010
  Serious: Yes (Hospitalization)
  Sender: FDA-Public Use
  Company Number: None

PATIENT
  Age: 60 Year
  Sex: Male

DRUGS (1)
  1. SULFAMETHOXAZOLE AND TRIMETHOPRIM [Suspect]
     Dosage: 800/160MG ONCE PO
     Route: 048
     Dates: start: 20050801, end: 20050801

REACTIONS (3)
  - BLISTER [None]
  - CELLULITIS [None]
  - RASH [None]
